FAERS Safety Report 23382342 (Version 1)
Quarter: 2024Q1

REPORT INFORMATION
  Report Type: Spontaneous
  Country: US (occurrence: None)
  Receive Date: 20240108
  Receipt Date: 20240108
  Transmission Date: 20240410
  Serious: Yes (Hospitalization)
  Sender: FDA-Public Use
  Company Number: None

PATIENT
  Sex: Male

DRUGS (1)
  1. KESIMPTA [Suspect]
     Active Substance: OFATUMUMAB
     Indication: Multiple sclerosis
     Dosage: FREQUENCY : MONTHLY;?
     Route: 042
     Dates: start: 202210

REACTIONS (9)
  - Multiple sclerosis [None]
  - Hypoaesthesia [None]
  - Peripheral swelling [None]
  - Muscle spasms [None]
  - Burning sensation [None]
  - Dizziness [None]
  - Headache [None]
  - Intracranial aneurysm [None]
  - Balance disorder [None]
